FAERS Safety Report 9262731 (Version 1)
Quarter: 2013Q2

REPORT INFORMATION
  Report Type: Spontaneous
  Country: FR (occurrence: FR)
  Receive Date: 20130430
  Receipt Date: 20130430
  Transmission Date: 20140414
  Serious: Yes (Other)
  Sender: FDA-Public Use
  Company Number: PHHY2013FR041743

PATIENT
  Age: 77 Year
  Sex: Female

DRUGS (3)
  1. ZOMETA [Suspect]
     Dosage: UNK
     Route: 042
     Dates: start: 2005, end: 201004
  2. FLAGYL [Concomitant]
     Dosage: UNK UKN, UNK
  3. REVLIMID [Concomitant]
     Dosage: UNK UKN, UNK

REACTIONS (6)
  - Osteonecrosis of jaw [Not Recovered/Not Resolved]
  - Oral infection [Unknown]
  - Fistula [Unknown]
  - Bone deformity [Unknown]
  - Osteitis [Recovered/Resolved]
  - Exposed bone in jaw [Unknown]
